FAERS Safety Report 8406442-1 (Version None)
Quarter: 2012Q2

REPORT INFORMATION
  Report Type: 
  Country: None (occurrence: None)
  Receive Date: 20120604
  Receipt Date: 20120524
  Transmission Date: 20120825
  Serious: Yes (Other)
  Sender: FDA-Public Use
  Company Number: US-CELGENEUS-163-21880-12053228

PATIENT
  Sex: Male
  Weight: 74.229 kg

DRUGS (8)
  1. RITUXIMAB [Suspect]
     Indication: MANTLE CELL LYMPHOMA
     Dosage: 780 MILLIGRAM
     Route: 041
     Dates: start: 20110128, end: 20110524
  2. BORTEZOMIB [Suspect]
     Indication: MANTLE CELL LYMPHOMA
     Dosage: 2 MILLIGRAM
     Route: 041
     Dates: start: 20110128, end: 20110527
  3. DILAUDID [Concomitant]
     Indication: PAIN
     Dosage: 2 MILLIGRAM
     Route: 065
     Dates: start: 20110719
  4. PERCOCET [Concomitant]
     Indication: PAIN
     Dosage: 7.5 MILLIGRAM
     Route: 065
     Dates: start: 20111227
  5. LYRICA [Concomitant]
     Indication: PAIN
     Dosage: 150 MILLIGRAM
     Route: 065
     Dates: start: 20120117
  6. REVLIMID [Suspect]
     Indication: MANTLE CELL LYMPHOMA
     Dosage: 10 MILLIGRAM
     Route: 041
     Dates: start: 20110128, end: 20110531
  7. RITUXIMAB [Suspect]
     Dosage: 780 MILLIGRAM
     Route: 041
     Dates: start: 20110811, end: 20120124
  8. LORTAB [Concomitant]
     Indication: PAIN
     Dosage: 5-500MG
     Route: 065
     Dates: start: 20120222

REACTIONS (1)
  - ANAL CANCER [None]
